FAERS Safety Report 18866973 (Version 1)
Quarter: 2021Q1

REPORT INFORMATION
  Report Type: Report from Study
  Country: GB (occurrence: GB)
  Receive Date: 20210208
  Receipt Date: 20210208
  Transmission Date: 20210420
  Serious: Yes (Hospitalization, Other)
  Sender: FDA-Public Use
  Company Number: GB-AMGEN-GBRSL2020204488

PATIENT
  Sex: Male

DRUGS (1)
  1. ARANESP [Suspect]
     Active Substance: DARBEPOETIN ALFA
     Indication: PRODUCT USED FOR UNKNOWN INDICATION
     Dosage: UNK
     Route: 065

REACTIONS (10)
  - Pleural effusion [Unknown]
  - Urinary tract infection [Unknown]
  - Infection [Unknown]
  - Pneumonia [Unknown]
  - Panic attack [Unknown]
  - Cellulitis [Unknown]
  - Cardiac failure [Unknown]
  - Head injury [Unknown]
  - Limb discomfort [Unknown]
  - Fall [Unknown]
